FAERS Safety Report 9486380 (Version 3)
Quarter: 2013Q4

REPORT INFORMATION
  Report Type: Spontaneous
  Country: US (occurrence: None)
  Receive Date: 20130827
  Receipt Date: 20131028
  Transmission Date: 20140711
  Serious: Yes (Other)
  Sender: FDA-Public Use
  Company Number: 2013P1018644

PATIENT
  Age: 5 Year
  Sex: Female
  Weight: 20.41 kg

DRUGS (2)
  1. ETHOSUXIMIDE [Suspect]
     Indication: CONVULSION
     Route: 048
     Dates: start: 201101
  2. CHILDREN^S CHEWABLE VITAMIN WITH CALCIUM [Concomitant]

REACTIONS (4)
  - Convulsion [None]
  - Drug ineffective [None]
  - Incorrect product storage [None]
  - Wrong technique in drug usage process [None]
